FAERS Safety Report 6219633-5 (Version None)
Quarter: 2009Q2

REPORT INFORMATION
  Report Type: 
  Country: None (occurrence: None)
  Receive Date: 20090609
  Receipt Date: 20090528
  Transmission Date: 20091009
  Serious: Yes (Life-Threatening, Other)
  Sender: FDA-Public Use
  Company Number: CL-PFIZER INC-2009221843

PATIENT
  Age: 16 Year

DRUGS (2)
  1. ZYVOX [Suspect]
     Indication: ABSCESS
     Dosage: 600 MG, UNK
     Route: 048
     Dates: start: 20090523, end: 20090523
  2. CIPROFLOXACIN [Concomitant]

REACTIONS (3)
  - ANAPHYLACTIC SHOCK [None]
  - FACE OEDEMA [None]
  - LARYNGEAL OEDEMA [None]
